FAERS Safety Report 17121604 (Version 2)
Quarter: 2020Q1

REPORT INFORMATION
  Report Type: Report from Study
  Country: CO (occurrence: CO)
  Receive Date: 20191206
  Receipt Date: 20200117
  Transmission Date: 20200409
  Serious: Yes (Other)
  Sender: FDA-Public Use
  Company Number: NVSC2019CO059244

PATIENT
  Sex: Female
  Weight: 58 kg

DRUGS (12)
  1. GABAPENTIN. [Suspect]
     Active Substance: GABAPENTIN
     Indication: OSTEOARTHRITIS
     Dosage: UNK UNK, QD
     Route: 048
  2. HYDROCODONE BITARTRATE AND ACETAMINOPHEN [Concomitant]
     Active Substance: ACETAMINOPHEN\HYDROCODONE BITARTRATE
     Indication: OSTEOARTHRITIS
     Dosage: UNK, QD
     Route: 048
  3. GABAPENTIN. [Suspect]
     Active Substance: GABAPENTIN
     Indication: OSTEOPOROSIS
  4. ALENDRONIC ACID [Concomitant]
     Active Substance: ALENDRONIC ACID
     Indication: OSTEOARTHRITIS
     Dosage: UNK, QD
     Route: 048
  5. THYROXINE [Concomitant]
     Active Substance: LEVOTHYROXINE
     Indication: THYROID DISORDER
     Dosage: 1 DF, QD
     Route: 048
  6. VITAMIN E [Concomitant]
     Active Substance: .ALPHA.-TOCOPHEROL
     Indication: HYPOVITAMINOSIS
     Dosage: UNK UNK, QD
     Route: 048
  7. HYDROCODONE BITARTRATE AND ACETAMINOPHEN [Concomitant]
     Active Substance: ACETAMINOPHEN\HYDROCODONE BITARTRATE
     Indication: OSTEOPOROSIS
  8. OMEPRAZOLE. [Concomitant]
     Active Substance: OMEPRAZOLE
     Indication: PRODUCT USED FOR UNKNOWN INDICATION
     Dosage: 1 DF, TID
     Route: 048
  9. GILENYA [Suspect]
     Active Substance: FINGOLIMOD HYDROCHLORIDE
     Indication: MULTIPLE SCLEROSIS
     Dosage: 0.5 MG, QD
     Route: 048
     Dates: start: 20170805
  10. ALENDRONIC ACID [Concomitant]
     Active Substance: ALENDRONIC ACID
     Indication: OSTEOPOROSIS
  11. CLONAZEPAM. [Concomitant]
     Active Substance: CLONAZEPAM
     Indication: INSOMNIA
     Dosage: 1 DF, QD
     Route: 048
  12. DIPIRONE [Concomitant]
     Active Substance: METAMIZOLE SODIUM
     Indication: HEADACHE
     Dosage: UNK
     Route: 042
     Dates: start: 20140106, end: 20140108

REACTIONS (6)
  - Somnolence [Unknown]
  - Vitamin D deficiency [Unknown]
  - Vitamin B complex deficiency [Unknown]
  - Speech disorder [Unknown]
  - Multiple sclerosis [Not Recovered/Not Resolved]
  - Gait disturbance [Unknown]

NARRATIVE: CASE EVENT DATE: 2018
